FAERS Safety Report 17237241 (Version 1)
Quarter: 2020Q1

REPORT INFORMATION
  Report Type: Spontaneous
  Country: FR (occurrence: FR)
  Receive Date: 20200106
  Receipt Date: 20200106
  Transmission Date: 20200409
  Serious: Yes (Other)
  Sender: FDA-Public Use
  Company Number: FR-ELI_LILLY_AND_COMPANY-FR201912013199

PATIENT
  Age: 58 Year
  Sex: Female

DRUGS (1)
  1. TALTZ [Suspect]
     Active Substance: IXEKIZUMAB
     Indication: ANKYLOSING SPONDYLITIS
     Dosage: 80 MG, 2/M
     Route: 058
     Dates: start: 20191008, end: 20191119

REACTIONS (2)
  - Abscess limb [Recovering/Resolving]
  - Abscess oral [Recovering/Resolving]

NARRATIVE: CASE EVENT DATE: 201911
